FAERS Safety Report 14262633 (Version 10)
Quarter: 2018Q2

REPORT INFORMATION
  Report Type: Spontaneous
  Country: CZ (occurrence: CZ)
  Receive Date: 20171208
  Receipt Date: 20180524
  Transmission Date: 20180711
  Serious: Yes (Life-Threatening, Hospitalization, Other)
  Sender: FDA-Public Use
  Company Number: CZ-AUROBINDO-AUR-APL-2017-44239

PATIENT
  Age: 82 Year
  Sex: Female

DRUGS (384)
  1. FENYTOIN [Suspect]
     Active Substance: PHENYTOIN
     Indication: SEIZURE
     Dosage: 20 MG/KG
     Route: 042
  2. FENYTOIN [Suspect]
     Active Substance: PHENYTOIN
     Indication: PARTIAL SEIZURES
  3. DIAZEPAM. [Suspect]
     Active Substance: DIAZEPAM
     Dosage: ()
  4. DIAZEPAM. [Suspect]
     Active Substance: DIAZEPAM
     Dosage: UNK ()
     Route: 042
  5. MILURIT [Suspect]
     Active Substance: ALLOPURINOL
     Dosage: ()
     Route: 048
  6. PROPOFOL. [Suspect]
     Active Substance: PROPOFOL
     Dosage: ()
     Route: 065
  7. PROPOFOL. [Suspect]
     Active Substance: PROPOFOL
     Dosage: UNK ()
     Route: 065
  8. PROPOFOL. [Suspect]
     Active Substance: PROPOFOL
     Dosage: UNK ()
     Route: 016
  9. PROPOFOL. [Suspect]
     Active Substance: PROPOFOL
     Dosage: ()
     Route: 065
  10. IBUPROFEN. [Suspect]
     Active Substance: IBUPROFEN
     Dosage: ()
     Route: 065
  11. GLIQUIDONE [Suspect]
     Active Substance: GLIQUIDONE
     Dosage: UNK ()
     Route: 065
  12. CEFTRIAXONE SODIUM. [Suspect]
     Active Substance: CEFTRIAXONE SODIUM
     Dosage: UNK ()
     Route: 048
  13. METAMIZOLE [Suspect]
     Active Substance: METAMIZOLE
     Dosage: ()
     Route: 065
  14. METAMIZOLE [Suspect]
     Active Substance: METAMIZOLE
     Dosage: ()
     Route: 048
  15. ALLOPURINOL. [Suspect]
     Active Substance: ALLOPURINOL
     Dosage: UNK ()
     Route: 065
  16. LISALGIL [Suspect]
     Active Substance: METAMIZOLE SODIUM
     Dosage: UNK ()
     Route: 048
  17. VASILIP [Concomitant]
     Active Substance: SIMVASTATIN
     Dosage: UNK ()
     Route: 065
  18. VASILIP [Concomitant]
     Active Substance: SIMVASTATIN
     Dosage: ()
     Route: 048
  19. VASILIP [Concomitant]
     Active Substance: SIMVASTATIN
     Dosage: UNK ()
     Route: 016
  20. LOKREN [Concomitant]
     Active Substance: BETAXOLOL HYDROCHLORIDE
     Dosage: UNK ()
     Route: 048
  21. LOKREN [Concomitant]
     Active Substance: BETAXOLOL HYDROCHLORIDE
     Dosage: ()
     Route: 065
  22. TRITACE [Concomitant]
     Active Substance: RAMIPRIL
     Dosage: UNK ()
     Route: 048
  23. TRITACE [Concomitant]
     Active Substance: RAMIPRIL
     Dosage: UNK ()
     Route: 048
  24. TRITACE [Concomitant]
     Active Substance: RAMIPRIL
     Dosage: UNK ()
     Route: 048
  25. KAPIDIN [Concomitant]
     Active Substance: LERCANIDIPINE HYDROCHLORIDE
     Dosage: UNK ()
     Route: 065
  26. KAPIDIN [Concomitant]
     Active Substance: LERCANIDIPINE HYDROCHLORIDE
     Dosage: UNK ()
     Route: 065
  27. KAPIDIN [Concomitant]
     Active Substance: LERCANIDIPINE HYDROCHLORIDE
     Dosage: UNK ()
     Route: 048
  28. KAPIDIN [Concomitant]
     Active Substance: LERCANIDIPINE HYDROCHLORIDE
     Dosage: UNK ()
     Route: 065
  29. KAPIDIN [Concomitant]
     Active Substance: LERCANIDIPINE HYDROCHLORIDE
     Dosage: UNK ()
     Route: 016
  30. CYNT                               /00985301/ [Concomitant]
     Active Substance: MOXONIDINE
     Dosage: ()
     Route: 048
  31. LERCANIDIPINE [Concomitant]
     Active Substance: LERCANIDIPINE
     Dosage: UNK ()
     Route: 065
  32. SIMVASTATIN. [Concomitant]
     Active Substance: SIMVASTATIN
     Dosage: UNK ()
     Route: 065
  33. ACETYLSALICYLIC ACID [Concomitant]
     Active Substance: ASPIRIN
     Indication: PRODUCT USED FOR UNKNOWN INDICATION
     Dosage: UNK ()
     Route: 065
  34. GLYCINE. [Concomitant]
     Active Substance: GLYCINE
     Dosage: UNK ()
     Route: 065
  35. BETAXOLOL. [Concomitant]
     Active Substance: BETAXOLOL
     Dosage: UNK ()
     Route: 065
  36. RAMIPRIL. [Concomitant]
     Active Substance: RAMIPRIL
     Dosage: UNK ()
     Route: 048
  37. FENYTOIN [Suspect]
     Active Substance: PHENYTOIN
     Indication: GENERALISED TONIC-CLONIC SEIZURE
  38. VALPROIC ACID. [Suspect]
     Active Substance: VALPROIC ACID
     Indication: GENERALISED TONIC-CLONIC SEIZURE
  39. DIAZEPAM. [Suspect]
     Active Substance: DIAZEPAM
     Dosage: UNK ()
     Route: 042
  40. DIAZEPAM. [Suspect]
     Active Substance: DIAZEPAM
     Dosage: ()
     Route: 065
  41. DIAZEPAM. [Suspect]
     Active Substance: DIAZEPAM
     Dosage: ()
     Route: 065
  42. DIAZEPAM. [Suspect]
     Active Substance: DIAZEPAM
     Dosage: UNK ()
     Route: 042
  43. DIAZEPAM. [Suspect]
     Active Substance: DIAZEPAM
     Dosage: ()
     Route: 065
  44. MILURIT [Suspect]
     Active Substance: ALLOPURINOL
     Dosage: UNK ()
     Route: 065
  45. PROPOFOL. [Suspect]
     Active Substance: PROPOFOL
     Indication: GENERALISED TONIC-CLONIC SEIZURE
     Dosage: UNK ()
     Route: 065
  46. PROPOFOL. [Suspect]
     Active Substance: PROPOFOL
     Dosage: ()
     Route: 065
  47. PROPOFOL. [Suspect]
     Active Substance: PROPOFOL
     Dosage: ()
     Route: 065
  48. IBUPROFEN. [Suspect]
     Active Substance: IBUPROFEN
     Dosage: UNK ()
     Route: 048
  49. IBUPROFEN. [Suspect]
     Active Substance: IBUPROFEN
     Dosage: UNK ()
     Route: 048
  50. GLIQUIDONE [Suspect]
     Active Substance: GLIQUIDONE
     Dosage: UNK ()
     Route: 065
  51. CEFTRIAXONE SODIUM. [Suspect]
     Active Substance: CEFTRIAXONE SODIUM
     Dosage: UNK ()
     Route: 048
  52. CEFTRIAXONE SODIUM. [Suspect]
     Active Substance: CEFTRIAXONE SODIUM
     Dosage: UNK ()
     Route: 048
  53. CEFTRIAXONE SODIUM. [Suspect]
     Active Substance: CEFTRIAXONE SODIUM
     Dosage: UNK ()
     Route: 048
  54. METAMIZOLE [Suspect]
     Active Substance: METAMIZOLE
     Dosage: UNK ()
     Route: 048
  55. ALLOPURINOL. [Suspect]
     Active Substance: ALLOPURINOL
     Dosage: UNK ()
     Route: 065
  56. LISALGIL [Suspect]
     Active Substance: METAMIZOLE SODIUM
     Dosage: UNK ()
     Route: 048
  57. LISALGIL [Suspect]
     Active Substance: METAMIZOLE SODIUM
     Dosage: UNK ()
     Route: 048
  58. LISALGIL [Suspect]
     Active Substance: METAMIZOLE SODIUM
     Dosage: UNK ()
     Route: 048
  59. VASILIP [Concomitant]
     Active Substance: SIMVASTATIN
     Dosage: UNK ()
     Route: 065
  60. VASILIP [Concomitant]
     Active Substance: SIMVASTATIN
     Dosage: UNK ()
     Route: 065
  61. VASILIP [Concomitant]
     Active Substance: SIMVASTATIN
     Dosage: UNK ()
  62. LOKREN [Concomitant]
     Active Substance: BETAXOLOL HYDROCHLORIDE
     Indication: HYPERTENSION
     Dosage: UNK
     Route: 048
  63. GODASAL [Concomitant]
     Active Substance: ASPIRIN\GLYCINE
     Dosage: UNK ()
     Route: 048
  64. GODASAL [Concomitant]
     Active Substance: ASPIRIN\GLYCINE
     Dosage: UNK ()
     Route: 048
  65. TRITACE [Concomitant]
     Active Substance: RAMIPRIL
     Dosage: UNK ()
     Route: 048
  66. TRITACE [Concomitant]
     Active Substance: RAMIPRIL
     Dosage: UNK ()
     Route: 048
  67. TRITACE [Concomitant]
     Active Substance: RAMIPRIL
     Dosage: UNK ()
     Route: 065
  68. TRITACE [Concomitant]
     Active Substance: RAMIPRIL
     Dosage: UNK ()
     Route: 048
  69. EUTHYROX [Concomitant]
     Active Substance: LEVOTHYROXINE SODIUM
     Indication: HYPOTHYROIDISM
     Dosage: UNK
     Route: 048
  70. EUTHYROX [Concomitant]
     Active Substance: LEVOTHYROXINE SODIUM
     Dosage: ()
     Route: 065
  71. EUTHYROX [Concomitant]
     Active Substance: LEVOTHYROXINE SODIUM
     Dosage: ()
     Route: 048
  72. EUTHYROX [Concomitant]
     Active Substance: LEVOTHYROXINE SODIUM
     Dosage: ()
     Route: 048
  73. EUTHYROX [Concomitant]
     Active Substance: LEVOTHYROXINE SODIUM
     Dosage: UNK ()
     Route: 065
  74. KAPIDIN [Concomitant]
     Active Substance: LERCANIDIPINE HYDROCHLORIDE
     Dosage: UNK ()
     Route: 065
  75. KAPIDIN [Concomitant]
     Active Substance: LERCANIDIPINE HYDROCHLORIDE
     Dosage: UNK ()
     Route: 065
  76. KAPIDIN [Concomitant]
     Active Substance: LERCANIDIPINE HYDROCHLORIDE
     Dosage: UNK ()
     Route: 048
  77. KAPIDIN [Concomitant]
     Active Substance: LERCANIDIPINE HYDROCHLORIDE
     Dosage: UNK ()
     Route: 065
  78. CYNT                               /00985301/ [Concomitant]
     Active Substance: MOXONIDINE
     Dosage: ()
     Route: 048
  79. CYNT                               /00985301/ [Concomitant]
     Active Substance: MOXONIDINE
     Dosage: ()
     Route: 048
  80. LERCANIDIPINE [Concomitant]
     Active Substance: LERCANIDIPINE
     Dosage: UNK ()
     Route: 065
  81. SIMVASTATIN. [Concomitant]
     Active Substance: SIMVASTATIN
     Dosage: UNK ()
     Route: 016
  82. ACETYLSALICYLIC ACID [Concomitant]
     Active Substance: ASPIRIN
     Dosage: UNK ()
     Route: 065
  83. ACETYLSALICYLIC ACID [Concomitant]
     Active Substance: ASPIRIN
     Dosage: UNK ()
     Route: 065
  84. ACETYLSALICYLIC ACID [Concomitant]
     Active Substance: ASPIRIN
     Dosage: UNK ()
     Route: 065
  85. GLYCINE. [Concomitant]
     Active Substance: GLYCINE
     Dosage: UNK ()
     Route: 065
  86. GLURENORM [Concomitant]
     Active Substance: GLIQUIDONE
     Indication: PRODUCT USED FOR UNKNOWN INDICATION
     Dosage: UNK
     Route: 048
  87. GLURENORM [Concomitant]
     Active Substance: GLIQUIDONE
     Dosage: ()
     Route: 048
  88. GLURENORM [Concomitant]
     Active Substance: GLIQUIDONE
     Dosage: ()
     Route: 048
  89. GLURENORM [Concomitant]
     Active Substance: GLIQUIDONE
     Dosage: ()
     Route: 048
  90. BETAXOLOL. [Concomitant]
     Active Substance: BETAXOLOL
     Dosage: UNK ()
     Route: 065
  91. RAMIPRIL. [Concomitant]
     Active Substance: RAMIPRIL
     Dosage: UNK ()
     Route: 048
  92. RAMIPRIL. [Concomitant]
     Active Substance: RAMIPRIL
     Dosage: UNK ()
     Route: 048
  93. RAMIPRIL. [Concomitant]
     Active Substance: RAMIPRIL
     Dosage: UNK ()
     Route: 048
  94. LEVOTHYROXINE SODIUM. [Concomitant]
     Active Substance: LEVOTHYROXINE SODIUM
     Indication: HYPOTHYROIDISM
     Dosage: ()
     Route: 048
  95. PARACETAMOL TABLET [Suspect]
     Active Substance: ACETAMINOPHEN
     Indication: PAIN
  96. LEVETIRACETAM FILM-COATED TABLET [Suspect]
     Active Substance: LEVETIRACETAM
     Indication: PARTIAL SEIZURES
  97. FLUCONAZOLE. [Suspect]
     Active Substance: FLUCONAZOLE
     Dosage: ()
     Route: 048
  98. VALPROIC ACID. [Suspect]
     Active Substance: VALPROIC ACID
     Indication: SEIZURE
     Dosage: 30 MG/KG
     Route: 042
  99. VALPROIC ACID. [Suspect]
     Active Substance: VALPROIC ACID
     Indication: PARTIAL SEIZURES
  100. DIAZEPAM. [Suspect]
     Active Substance: DIAZEPAM
     Dosage: UNK ()
     Route: 042
  101. DIAZEPAM. [Suspect]
     Active Substance: DIAZEPAM
     Dosage: UNK ()
     Route: 042
  102. DIAZEPAM. [Suspect]
     Active Substance: DIAZEPAM
     Dosage: ()
  103. AMOXICILLIN TRIHYDRATE [Suspect]
     Active Substance: AMOXICILLIN
     Indication: PNEUMONIA
     Dosage: UNK ()
     Route: 048
  104. PROPOFOL. [Suspect]
     Active Substance: PROPOFOL
     Indication: SEIZURE
     Dosage: ()
  105. PROPOFOL. [Suspect]
     Active Substance: PROPOFOL
     Dosage: ()
     Route: 065
  106. PROPOFOL. [Suspect]
     Active Substance: PROPOFOL
     Dosage: UNK ()
     Route: 065
  107. PROPOFOL. [Suspect]
     Active Substance: PROPOFOL
     Dosage: ()
     Route: 065
  108. PROPOFOL. [Suspect]
     Active Substance: PROPOFOL
     Dosage: ()
     Route: 065
  109. PROPOFOL. [Suspect]
     Active Substance: PROPOFOL
     Dosage: ()
     Route: 065
  110. PROPOFOL. [Suspect]
     Active Substance: PROPOFOL
     Dosage: UNK ()
     Route: 065
  111. PROPOFOL. [Suspect]
     Active Substance: PROPOFOL
     Dosage: UNK ()
     Route: 016
  112. IBUPROFEN. [Suspect]
     Active Substance: IBUPROFEN
     Dosage: UNK ()
     Route: 048
  113. IBUPROFEN. [Suspect]
     Active Substance: IBUPROFEN
     Dosage: ()
     Route: 065
  114. IBUPROFEN. [Suspect]
     Active Substance: IBUPROFEN
     Dosage: ()
     Route: 065
  115. CEFTRIAXONE SODIUM. [Suspect]
     Active Substance: CEFTRIAXONE SODIUM
     Dosage: UNK ()
     Route: 048
  116. METAMIZOLE [Suspect]
     Active Substance: METAMIZOLE
     Dosage: UNK ()
     Route: 048
  117. ALLOPURINOL. [Suspect]
     Active Substance: ALLOPURINOL
     Indication: PRODUCT USED FOR UNKNOWN INDICATION
     Dosage: UNK ()
     Route: 065
  118. ALLOPURINOL. [Suspect]
     Active Substance: ALLOPURINOL
     Dosage: UNK ()
     Route: 065
  119. ALLOPURINOL. [Suspect]
     Active Substance: ALLOPURINOL
     Dosage: UNK ()
     Route: 065
  120. LISALGIL [Suspect]
     Active Substance: METAMIZOLE SODIUM
     Dosage: ()
     Route: 065
  121. VASILIP [Concomitant]
     Active Substance: SIMVASTATIN
     Dosage: ()
     Route: 048
  122. VASILIP [Concomitant]
     Active Substance: SIMVASTATIN
     Dosage: ()
     Route: 048
  123. VASILIP [Concomitant]
     Active Substance: SIMVASTATIN
     Dosage: UNK ()
     Route: 065
  124. VASILIP [Concomitant]
     Active Substance: SIMVASTATIN
     Dosage: ()
     Route: 048
  125. LOKREN [Concomitant]
     Active Substance: BETAXOLOL HYDROCHLORIDE
     Dosage: ()
     Route: 065
  126. LOKREN [Concomitant]
     Active Substance: BETAXOLOL HYDROCHLORIDE
     Dosage: UNK ()
     Route: 048
  127. LOKREN [Concomitant]
     Active Substance: BETAXOLOL HYDROCHLORIDE
     Dosage: UNK ()
     Route: 048
  128. LOKREN [Concomitant]
     Active Substance: BETAXOLOL HYDROCHLORIDE
     Dosage: UNK ()
     Route: 048
  129. LOKREN [Concomitant]
     Active Substance: BETAXOLOL HYDROCHLORIDE
     Dosage: UNK ()
     Route: 048
  130. TRITACE [Concomitant]
     Active Substance: RAMIPRIL
     Dosage: UNK ()
     Route: 048
  131. TRITACE [Concomitant]
     Active Substance: RAMIPRIL
     Dosage: UNK ()
     Route: 048
  132. EUTHYROX [Concomitant]
     Active Substance: LEVOTHYROXINE SODIUM
     Dosage: ()
     Route: 065
  133. EUTHYROX [Concomitant]
     Active Substance: LEVOTHYROXINE SODIUM
     Dosage: ()
     Route: 065
  134. KAPIDIN [Concomitant]
     Active Substance: LERCANIDIPINE HYDROCHLORIDE
     Dosage: UNK ()
     Route: 048
  135. KAPIDIN [Concomitant]
     Active Substance: LERCANIDIPINE HYDROCHLORIDE
     Dosage: UNK ()
     Route: 048
  136. CYNT                               /00985301/ [Concomitant]
     Active Substance: MOXONIDINE
     Indication: HYPERTENSION
     Dosage: ()
     Route: 048
  137. LERCANIDIPINE [Concomitant]
     Active Substance: LERCANIDIPINE
     Dosage: UNK ()
     Route: 065
  138. LERCANIDIPINE [Concomitant]
     Active Substance: LERCANIDIPINE
     Dosage: UNK ()
     Route: 065
  139. SIMVASTATIN. [Concomitant]
     Active Substance: SIMVASTATIN
     Dosage: UNK ()
     Route: 065
  140. SIMVASTATIN. [Concomitant]
     Active Substance: SIMVASTATIN
     Dosage: UNK ()
     Route: 065
  141. SIMVASTATIN. [Concomitant]
     Active Substance: SIMVASTATIN
     Dosage: UNK ()
     Route: 016
  142. ACETYLSALICYLIC ACID [Concomitant]
     Active Substance: ASPIRIN
     Dosage: UNK ()
     Route: 065
  143. GLYCINE. [Concomitant]
     Active Substance: GLYCINE
     Dosage: UNK ()
  144. GLYCINE. [Concomitant]
     Active Substance: GLYCINE
     Dosage: UNK ()
     Route: 065
  145. GLYCINE. [Concomitant]
     Active Substance: GLYCINE
     Dosage: UNK ()
     Route: 065
  146. GLYCINE. [Concomitant]
     Active Substance: GLYCINE
     Dosage: ()
     Route: 065
  147. GLURENORM [Concomitant]
     Active Substance: GLIQUIDONE
     Dosage: ()
     Route: 048
  148. BETAXOLOL. [Concomitant]
     Active Substance: BETAXOLOL
     Indication: PRODUCT USED FOR UNKNOWN INDICATION
     Dosage: UNK ()
     Route: 065
  149. BETAXOLOL. [Concomitant]
     Active Substance: BETAXOLOL
     Dosage: UNK ()
     Route: 065
  150. RAMIPRIL. [Concomitant]
     Active Substance: RAMIPRIL
     Dosage: UNK ()
     Route: 065
  151. RAMIPRIL. [Concomitant]
     Active Substance: RAMIPRIL
     Dosage: UNK ()
     Route: 065
  152. RAMIPRIL. [Concomitant]
     Active Substance: RAMIPRIL
     Dosage: UNK ()
     Route: 048
  153. FLUCONAZOLE. [Suspect]
     Active Substance: FLUCONAZOLE
     Dosage: ()
     Route: 065
  154. DIAZEPAM. [Suspect]
     Active Substance: DIAZEPAM
     Dosage: ()
     Route: 065
  155. PROPOFOL. [Suspect]
     Active Substance: PROPOFOL
     Dosage: UNK ()
     Route: 065
  156. PROPOFOL. [Suspect]
     Active Substance: PROPOFOL
     Dosage: ()
     Route: 065
  157. PROPOFOL. [Suspect]
     Active Substance: PROPOFOL
     Dosage: ()
     Route: 065
  158. PROPOFOL. [Suspect]
     Active Substance: PROPOFOL
     Dosage: ()
     Route: 065
  159. PROPOFOL. [Suspect]
     Active Substance: PROPOFOL
     Dosage: ()
     Route: 065
  160. GLIQUIDONE [Suspect]
     Active Substance: GLIQUIDONE
     Dosage: UNK ()
     Route: 016
  161. GLIQUIDONE [Suspect]
     Active Substance: GLIQUIDONE
     Dosage: ()
     Route: 065
  162. CEFTRIAXONE SODIUM. [Suspect]
     Active Substance: CEFTRIAXONE SODIUM
     Dosage: UNK ()
     Route: 048
  163. CEFTRIAXONE SODIUM. [Suspect]
     Active Substance: CEFTRIAXONE SODIUM
     Dosage: UNK ()
     Route: 048
  164. METAMIZOLE [Suspect]
     Active Substance: METAMIZOLE
     Indication: PRODUCT USED FOR UNKNOWN INDICATION
     Dosage: UNK ()
  165. METAMIZOLE [Suspect]
     Active Substance: METAMIZOLE
     Dosage: ()
     Route: 048
  166. LISALGIL [Suspect]
     Active Substance: METAMIZOLE SODIUM
     Dosage: UNK ()
     Route: 048
  167. LOKREN [Concomitant]
     Active Substance: BETAXOLOL HYDROCHLORIDE
     Dosage: ()
     Route: 065
  168. LOKREN [Concomitant]
     Active Substance: BETAXOLOL HYDROCHLORIDE
     Dosage: UNK ()
     Route: 048
  169. LOKREN [Concomitant]
     Active Substance: BETAXOLOL HYDROCHLORIDE
     Dosage: UNK ()
     Route: 048
  170. LOKREN [Concomitant]
     Active Substance: BETAXOLOL HYDROCHLORIDE
     Dosage: UNK ()
     Route: 065
  171. LOKREN [Concomitant]
     Active Substance: BETAXOLOL HYDROCHLORIDE
     Dosage: UNK ()
     Route: 048
  172. GODASAL [Concomitant]
     Active Substance: ASPIRIN\GLYCINE
     Dosage: UNK ()
     Route: 048
  173. TRITACE [Concomitant]
     Active Substance: RAMIPRIL
     Dosage: UNK ()
     Route: 048
  174. TRITACE [Concomitant]
     Active Substance: RAMIPRIL
     Dosage: UNK ()
     Route: 065
  175. EUTHYROX [Concomitant]
     Active Substance: LEVOTHYROXINE SODIUM
     Indication: PRODUCT USED FOR UNKNOWN INDICATION
     Dosage: UNK ()
  176. EUTHYROX [Concomitant]
     Active Substance: LEVOTHYROXINE SODIUM
     Dosage: ()
     Route: 048
  177. EUTHYROX [Concomitant]
     Active Substance: LEVOTHYROXINE SODIUM
     Dosage: ()
     Route: 065
  178. EUTHYROX [Concomitant]
     Active Substance: LEVOTHYROXINE SODIUM
     Dosage: ()
     Route: 048
  179. EUTHYROX [Concomitant]
     Active Substance: LEVOTHYROXINE SODIUM
     Dosage: ()
     Route: 065
  180. EUTHYROX [Concomitant]
     Active Substance: LEVOTHYROXINE SODIUM
     Dosage: UNK ()
     Route: 065
  181. KAPIDIN [Concomitant]
     Active Substance: LERCANIDIPINE HYDROCHLORIDE
     Indication: PRODUCT USED FOR UNKNOWN INDICATION
     Dosage: UNK ()
     Route: 048
  182. KAPIDIN [Concomitant]
     Active Substance: LERCANIDIPINE HYDROCHLORIDE
     Dosage: UNK ()
     Route: 065
  183. KAPIDIN [Concomitant]
     Active Substance: LERCANIDIPINE HYDROCHLORIDE
     Dosage: UNK ()
     Route: 016
  184. CYNT                               /00985301/ [Concomitant]
     Active Substance: MOXONIDINE
     Indication: HYPERTENSION
     Dosage: UNK
  185. CYNT                               /00985301/ [Concomitant]
     Active Substance: MOXONIDINE
     Dosage: ()
     Route: 048
  186. CYNT                               /00985301/ [Concomitant]
     Active Substance: MOXONIDINE
     Dosage: ()
     Route: 048
  187. CYNT                               /00985301/ [Concomitant]
     Active Substance: MOXONIDINE
     Dosage: ()
     Route: 048
  188. LERCANIDIPINE [Concomitant]
     Active Substance: LERCANIDIPINE
     Dosage: UNK ()
     Route: 065
  189. GLURENORM [Concomitant]
     Active Substance: GLIQUIDONE
     Dosage: UNK ()
     Route: 065
  190. GLURENORM [Concomitant]
     Active Substance: GLIQUIDONE
     Dosage: ()
     Route: 048
  191. BETAXOLOL. [Concomitant]
     Active Substance: BETAXOLOL
     Dosage: UNK ()
     Route: 065
  192. RAMIPRIL. [Concomitant]
     Active Substance: RAMIPRIL
     Dosage: UNK ()
     Route: 048
  193. MOXONIDINE [Concomitant]
     Active Substance: MOXONIDINE
     Indication: PRODUCT USED FOR UNKNOWN INDICATION
     Dosage: ()
     Route: 048
  194. FLUCONAZOLE. [Suspect]
     Active Substance: FLUCONAZOLE
     Indication: PNEUMONIA
     Dosage: ()
     Route: 048
  195. DIAZEPAM. [Suspect]
     Active Substance: DIAZEPAM
     Dosage: ()
     Route: 065
  196. DIAZEPAM. [Suspect]
     Active Substance: DIAZEPAM
     Dosage: ()
     Route: 065
  197. DIAZEPAM. [Suspect]
     Active Substance: DIAZEPAM
     Dosage: ()
     Route: 042
  198. AMOXICILLIN TRIHYDRATE [Suspect]
     Active Substance: AMOXICILLIN
     Dosage: UNK ()
     Route: 048
  199. MILURIT [Suspect]
     Active Substance: ALLOPURINOL
     Dosage: UNK ()
     Route: 048
  200. MILURIT [Suspect]
     Active Substance: ALLOPURINOL
     Dosage: ()
     Route: 048
  201. MILURIT [Suspect]
     Active Substance: ALLOPURINOL
     Dosage: ()
     Route: 048
  202. PROPOFOL. [Suspect]
     Active Substance: PROPOFOL
     Dosage: UNK ()
     Route: 065
  203. PROPOFOL. [Suspect]
     Active Substance: PROPOFOL
     Dosage: ()
     Route: 065
  204. PROPOFOL. [Suspect]
     Active Substance: PROPOFOL
     Dosage: UNK ()
  205. IBUPROFEN. [Suspect]
     Active Substance: IBUPROFEN
     Indication: PAIN
     Dosage: UNK
     Route: 048
  206. IBUPROFEN. [Suspect]
     Active Substance: IBUPROFEN
     Dosage: UNK ()
     Route: 048
  207. GLIQUIDONE [Suspect]
     Active Substance: GLIQUIDONE
     Dosage: UNK ()
     Route: 065
  208. CEFTRIAXONE SODIUM. [Suspect]
     Active Substance: CEFTRIAXONE SODIUM
     Indication: PNEUMONIA
     Dosage: UNK ()
     Route: 065
  209. CEFTRIAXONE SODIUM. [Suspect]
     Active Substance: CEFTRIAXONE SODIUM
     Dosage: UNK ()
     Route: 048
  210. CEFTRIAXONE SODIUM. [Suspect]
     Active Substance: CEFTRIAXONE SODIUM
     Dosage: UNK ()
     Route: 048
  211. CEFTRIAXONE SODIUM. [Suspect]
     Active Substance: CEFTRIAXONE SODIUM
     Dosage: UNK ()
     Route: 048
  212. METAMIZOLE [Suspect]
     Active Substance: METAMIZOLE
     Indication: PAIN
     Dosage: UNK
     Route: 048
  213. METAMIZOLE [Suspect]
     Active Substance: METAMIZOLE
     Dosage: ()
     Route: 065
  214. METAMIZOLE [Suspect]
     Active Substance: METAMIZOLE
     Dosage: UNK ()
     Route: 048
  215. METAMIZOLE [Suspect]
     Active Substance: METAMIZOLE
     Dosage: ()
     Route: 048
  216. ALLOPURINOL. [Suspect]
     Active Substance: ALLOPURINOL
     Dosage: UNK ()
     Route: 065
  217. LISALGIL [Suspect]
     Active Substance: METAMIZOLE SODIUM
     Dosage: UNK ()
     Route: 048
  218. VASILIP [Concomitant]
     Active Substance: SIMVASTATIN
     Dosage: ()
     Route: 048
  219. LOKREN [Concomitant]
     Active Substance: BETAXOLOL HYDROCHLORIDE
     Indication: PRODUCT USED FOR UNKNOWN INDICATION
     Dosage: UNK ()
     Route: 048
  220. LOKREN [Concomitant]
     Active Substance: BETAXOLOL HYDROCHLORIDE
     Dosage: UNK ()
     Route: 048
  221. GODASAL [Concomitant]
     Active Substance: ASPIRIN\GLYCINE
     Indication: PRODUCT USED FOR UNKNOWN INDICATION
     Dosage: UNK
     Route: 048
  222. GODASAL [Concomitant]
     Active Substance: ASPIRIN\GLYCINE
     Dosage: ()
     Route: 048
  223. GODASAL [Concomitant]
     Active Substance: ASPIRIN\GLYCINE
     Dosage: UNK ()
     Route: 065
  224. GODASAL [Concomitant]
     Active Substance: ASPIRIN\GLYCINE
     Dosage: UNK ()
     Route: 048
  225. TRITACE [Concomitant]
     Active Substance: RAMIPRIL
     Indication: PRODUCT USED FOR UNKNOWN INDICATION
     Dosage: UNK ()
     Route: 048
  226. TRITACE [Concomitant]
     Active Substance: RAMIPRIL
     Dosage: UNK ()
     Route: 065
  227. TRITACE [Concomitant]
     Active Substance: RAMIPRIL
     Dosage: UNK ()
     Route: 065
  228. EUTHYROX [Concomitant]
     Active Substance: LEVOTHYROXINE SODIUM
     Dosage: ()
     Route: 048
  229. EUTHYROX [Concomitant]
     Active Substance: LEVOTHYROXINE SODIUM
     Dosage: ()
     Route: 065
  230. EUTHYROX [Concomitant]
     Active Substance: LEVOTHYROXINE SODIUM
     Dosage: ()
     Route: 048
  231. KAPIDIN [Concomitant]
     Active Substance: LERCANIDIPINE HYDROCHLORIDE
     Dosage: UNK ()
     Route: 048
  232. KAPIDIN [Concomitant]
     Active Substance: LERCANIDIPINE HYDROCHLORIDE
     Dosage: UNK ()
     Route: 048
  233. KAPIDIN [Concomitant]
     Active Substance: LERCANIDIPINE HYDROCHLORIDE
     Dosage: UNK ()
     Route: 065
  234. LERCANIDIPINE [Concomitant]
     Active Substance: LERCANIDIPINE
     Indication: PRODUCT USED FOR UNKNOWN INDICATION
     Dosage: UNK
     Route: 065
  235. LERCANIDIPINE [Concomitant]
     Active Substance: LERCANIDIPINE
     Dosage: UNK ()
     Route: 065
  236. SIMVASTATIN. [Concomitant]
     Active Substance: SIMVASTATIN
     Indication: PRODUCT USED FOR UNKNOWN INDICATION
     Dosage: UNK ()
     Route: 065
  237. SIMVASTATIN. [Concomitant]
     Active Substance: SIMVASTATIN
     Dosage: UNK ()
     Route: 065
  238. SIMVASTATIN. [Concomitant]
     Active Substance: SIMVASTATIN
     Dosage: UNK ()
     Route: 065
  239. ACETYLSALICYLIC ACID [Concomitant]
     Active Substance: ASPIRIN
     Dosage: UNK ()
     Route: 065
  240. ACETYLSALICYLIC ACID [Concomitant]
     Active Substance: ASPIRIN
     Dosage: UNK ()
     Route: 065
  241. GLYCINE. [Concomitant]
     Active Substance: GLYCINE
     Dosage: UNK ()
     Route: 065
  242. GLYCINE. [Concomitant]
     Active Substance: GLYCINE
     Dosage: UNK ()
     Route: 065
  243. GLURENORM [Concomitant]
     Active Substance: GLIQUIDONE
     Dosage: ()
     Route: 065
  244. GLURENORM [Concomitant]
     Active Substance: GLIQUIDONE
     Dosage: UNK ()
     Route: 065
  245. BETAXOLOL. [Concomitant]
     Active Substance: BETAXOLOL
     Dosage: UNK ()
     Route: 065
  246. BETAXOLOL. [Concomitant]
     Active Substance: BETAXOLOL
     Dosage: UNK ()
     Route: 065
  247. BETAXOLOL. [Concomitant]
     Active Substance: BETAXOLOL
     Dosage: UNK ()
     Route: 065
  248. PARACETAMOL TABLET [Suspect]
     Active Substance: ACETAMINOPHEN
     Indication: ANALGESIC THERAPY
     Dosage: UNK ()
     Route: 065
  249. LEVETIRACETAM FILM-COATED TABLET [Suspect]
     Active Substance: LEVETIRACETAM
     Indication: SEIZURE
     Dosage: 40 MG/KG, UNK
     Route: 042
  250. DIAZEPAM. [Suspect]
     Active Substance: DIAZEPAM
     Dosage: ()
     Route: 065
  251. DIAZEPAM. [Suspect]
     Active Substance: DIAZEPAM
     Dosage: ()
     Route: 065
  252. DIAZEPAM. [Suspect]
     Active Substance: DIAZEPAM
     Dosage: ()
     Route: 065
  253. DIAZEPAM. [Suspect]
     Active Substance: DIAZEPAM
     Dosage: ()
     Route: 065
  254. MILURIT [Suspect]
     Active Substance: ALLOPURINOL
     Indication: PRODUCT USED FOR UNKNOWN INDICATION
     Dosage: ()
     Route: 048
  255. PROPOFOL. [Suspect]
     Active Substance: PROPOFOL
     Indication: EPILEPSY
     Dosage: ()
     Route: 065
  256. PROPOFOL. [Suspect]
     Active Substance: PROPOFOL
     Dosage: ()
     Route: 065
  257. PROPOFOL. [Suspect]
     Active Substance: PROPOFOL
     Dosage: ()
     Route: 065
  258. PROPOFOL. [Suspect]
     Active Substance: PROPOFOL
     Dosage: ()
     Route: 065
  259. PROPOFOL. [Suspect]
     Active Substance: PROPOFOL
     Dosage: ()
     Route: 065
  260. METAMIZOLE [Suspect]
     Active Substance: METAMIZOLE
     Dosage: UNK ()
     Route: 048
  261. METAMIZOLE [Suspect]
     Active Substance: METAMIZOLE
     Dosage: UNK ()
     Route: 048
  262. ALLOPURINOL. [Suspect]
     Active Substance: ALLOPURINOL
     Dosage: UNK ()
     Route: 065
  263. LISALGIL [Suspect]
     Active Substance: METAMIZOLE SODIUM
     Indication: PAIN
     Dosage: UNK ()
     Route: 048
  264. VASILIP [Concomitant]
     Active Substance: SIMVASTATIN
     Indication: PRODUCT USED FOR UNKNOWN INDICATION
     Dosage: ()
     Route: 065
  265. LOKREN [Concomitant]
     Active Substance: BETAXOLOL HYDROCHLORIDE
     Dosage: UNK ()
     Route: 048
  266. GODASAL [Concomitant]
     Active Substance: ASPIRIN\GLYCINE
     Dosage: UNK ()
     Route: 048
  267. TRITACE [Concomitant]
     Active Substance: RAMIPRIL
     Indication: HYPERTENSION
     Dosage: UNK ()
  268. TRITACE [Concomitant]
     Active Substance: RAMIPRIL
     Dosage: UNK ()
     Route: 065
  269. TRITACE [Concomitant]
     Active Substance: RAMIPRIL
     Dosage: UNK ()
     Route: 065
  270. TRITACE [Concomitant]
     Active Substance: RAMIPRIL
     Dosage: UNK ()
     Route: 048
  271. TRITACE [Concomitant]
     Active Substance: RAMIPRIL
     Dosage: ()
     Route: 065
  272. EUTHYROX [Concomitant]
     Active Substance: LEVOTHYROXINE SODIUM
     Dosage: UNK ()
     Route: 065
  273. EUTHYROX [Concomitant]
     Active Substance: LEVOTHYROXINE SODIUM
     Dosage: UNK ()
     Route: 048
  274. EUTHYROX [Concomitant]
     Active Substance: LEVOTHYROXINE SODIUM
     Dosage: ()
     Route: 065
  275. KAPIDIN [Concomitant]
     Active Substance: LERCANIDIPINE HYDROCHLORIDE
     Dosage: UNK ()
     Route: 065
  276. CYNT                               /00985301/ [Concomitant]
     Active Substance: MOXONIDINE
     Dosage: ()
     Route: 048
  277. ACETYLSALICYLIC ACID [Concomitant]
     Active Substance: ASPIRIN
     Dosage: UNK ()
     Route: 065
  278. ACETYLSALICYLIC ACID [Concomitant]
     Active Substance: ASPIRIN
     Dosage: UNK ()
     Route: 065
  279. GLYCINE. [Concomitant]
     Active Substance: GLYCINE
     Dosage: UNK ()
     Route: 065
  280. GLYCINE. [Concomitant]
     Active Substance: GLYCINE
     Dosage: UNK ()
     Route: 065
  281. GLYCINE. [Concomitant]
     Active Substance: GLYCINE
     Dosage: UNK ()
     Route: 065
  282. GLURENORM [Concomitant]
     Active Substance: GLIQUIDONE
     Dosage: UNK ()
     Route: 065
  283. GLURENORM [Concomitant]
     Active Substance: GLIQUIDONE
     Dosage: ()
     Route: 065
  284. GLURENORM [Concomitant]
     Active Substance: GLIQUIDONE
     Dosage: ()
     Route: 048
  285. GLURENORM [Concomitant]
     Active Substance: GLIQUIDONE
     Dosage: ()
     Route: 048
  286. GLURENORM [Concomitant]
     Active Substance: GLIQUIDONE
     Dosage: ()
     Route: 048
  287. BETAXOLOL. [Concomitant]
     Active Substance: BETAXOLOL
     Dosage: UNK ()
     Route: 065
  288. BETAXOLOL. [Concomitant]
     Active Substance: BETAXOLOL
     Dosage: UNK ()
     Route: 065
  289. RAMIPRIL. [Concomitant]
     Active Substance: RAMIPRIL
     Indication: PRODUCT USED FOR UNKNOWN INDICATION
     Dosage: UNK ()
     Route: 065
  290. RAMIPRIL. [Concomitant]
     Active Substance: RAMIPRIL
     Dosage: UNK ()
     Route: 048
  291. RAMIPRIL. [Concomitant]
     Active Substance: RAMIPRIL
     Dosage: UNK ()
     Route: 048
  292. MOXONIDINE [Concomitant]
     Active Substance: MOXONIDINE
     Dosage: ()
     Route: 048
  293. MOXONIDINE [Concomitant]
     Active Substance: MOXONIDINE
     Dosage: ()
     Route: 048
  294. LEVETIRACETAM FILM-COATED TABLET [Suspect]
     Active Substance: LEVETIRACETAM
     Indication: GENERALISED TONIC-CLONIC SEIZURE
     Dosage: 3000 MG, QD
     Route: 065
  295. FLUCONAZOLE. [Suspect]
     Active Substance: FLUCONAZOLE
     Indication: ANTIFUNGAL TREATMENT
     Dosage: UNK
     Route: 048
  296. FLUCONAZOLE. [Suspect]
     Active Substance: FLUCONAZOLE
     Indication: PNEUMONIA
     Dosage: ()
  297. DIAZEPAM. [Suspect]
     Active Substance: DIAZEPAM
     Indication: HYPERTENSION
     Dosage: ()
     Route: 065
  298. DIAZEPAM. [Suspect]
     Active Substance: DIAZEPAM
     Indication: SEIZURE
     Dosage: ()
     Route: 065
  299. DIAZEPAM. [Suspect]
     Active Substance: DIAZEPAM
     Indication: GENERALISED TONIC-CLONIC SEIZURE
     Dosage: ()
     Route: 065
  300. DIAZEPAM. [Suspect]
     Active Substance: DIAZEPAM
     Dosage: ()
     Route: 065
  301. DIAZEPAM. [Suspect]
     Active Substance: DIAZEPAM
     Dosage: ()
     Route: 042
  302. MILURIT [Suspect]
     Active Substance: ALLOPURINOL
     Indication: GOUT
     Dosage: UNK
     Route: 065
  303. PROPOFOL. [Suspect]
     Active Substance: PROPOFOL
     Indication: CLONIC CONVULSION
     Dosage: ()
     Route: 065
  304. PROPOFOL. [Suspect]
     Active Substance: PROPOFOL
     Dosage: ()
     Route: 065
  305. PROPOFOL. [Suspect]
     Active Substance: PROPOFOL
     Dosage: ()
  306. PROPOFOL. [Suspect]
     Active Substance: PROPOFOL
     Dosage: ()
  307. PROPOFOL. [Suspect]
     Active Substance: PROPOFOL
     Dosage: ()
  308. IBUPROFEN. [Suspect]
     Active Substance: IBUPROFEN
     Dosage: UNK ()
     Route: 048
  309. GLIQUIDONE [Suspect]
     Active Substance: GLIQUIDONE
     Dosage: UNK ()
     Route: 065
  310. CEFTRIAXONE SODIUM. [Suspect]
     Active Substance: CEFTRIAXONE SODIUM
     Indication: PNEUMONIA
     Dosage: UNK
  311. CEFTRIAXONE SODIUM. [Suspect]
     Active Substance: CEFTRIAXONE SODIUM
     Dosage: UNK ()
     Route: 048
  312. CEFTRIAXONE SODIUM. [Suspect]
     Active Substance: CEFTRIAXONE SODIUM
     Dosage: UNK ()
     Route: 048
  313. METAMIZOLE [Suspect]
     Active Substance: METAMIZOLE
     Dosage: UNK ()
     Route: 048
  314. METAMIZOLE [Suspect]
     Active Substance: METAMIZOLE
     Dosage: UNK ()
     Route: 048
  315. ALLOPURINOL. [Suspect]
     Active Substance: ALLOPURINOL
     Dosage: UNK ()
     Route: 065
  316. ALLOPURINOL. [Suspect]
     Active Substance: ALLOPURINOL
     Dosage: UNK ()
     Route: 065
  317. LISALGIL [Suspect]
     Active Substance: METAMIZOLE SODIUM
     Dosage: UNK ()
     Route: 048
  318. LISALGIL [Suspect]
     Active Substance: METAMIZOLE SODIUM
     Dosage: UNK ()
     Route: 048
  319. VASILIP [Concomitant]
     Active Substance: SIMVASTATIN
     Dosage: ()
     Route: 048
  320. VASILIP [Concomitant]
     Active Substance: SIMVASTATIN
     Dosage: UNK ()
     Route: 065
  321. VASILIP [Concomitant]
     Active Substance: SIMVASTATIN
     Dosage: UNK ()
     Route: 065
  322. VASILIP [Concomitant]
     Active Substance: SIMVASTATIN
     Dosage: ()
     Route: 065
  323. GODASAL [Concomitant]
     Active Substance: ASPIRIN\GLYCINE
     Dosage: ()
     Route: 065
  324. GODASAL [Concomitant]
     Active Substance: ASPIRIN\GLYCINE
     Dosage: ()
     Route: 048
  325. GODASAL [Concomitant]
     Active Substance: ASPIRIN\GLYCINE
     Dosage: UNK ()
     Route: 048
  326. GODASAL [Concomitant]
     Active Substance: ASPIRIN\GLYCINE
     Dosage: UNK ()
     Route: 048
  327. GODASAL [Concomitant]
     Active Substance: ASPIRIN\GLYCINE
     Dosage: UNK ()
     Route: 048
  328. GODASAL [Concomitant]
     Active Substance: ASPIRIN\GLYCINE
     Dosage: ()
     Route: 065
  329. TRITACE [Concomitant]
     Active Substance: RAMIPRIL
     Dosage: UNK ()
     Route: 065
  330. TRITACE [Concomitant]
     Active Substance: RAMIPRIL
     Dosage: UNK ()
     Route: 065
  331. TRITACE [Concomitant]
     Active Substance: RAMIPRIL
     Dosage: UNK ()
     Route: 048
  332. EUTHYROX [Concomitant]
     Active Substance: LEVOTHYROXINE SODIUM
     Dosage: ()
     Route: 048
  333. KAPIDIN [Concomitant]
     Active Substance: LERCANIDIPINE HYDROCHLORIDE
     Indication: HYPERTENSION
     Dosage: ()
  334. KAPIDIN [Concomitant]
     Active Substance: LERCANIDIPINE HYDROCHLORIDE
     Dosage: ()
     Route: 065
  335. CYNT                               /00985301/ [Concomitant]
     Active Substance: MOXONIDINE
     Dosage: ()
     Route: 048
  336. LERCANIDIPINE [Concomitant]
     Active Substance: LERCANIDIPINE
     Dosage: UNK ()
     Route: 065
  337. LERCANIDIPINE [Concomitant]
     Active Substance: LERCANIDIPINE
     Dosage: UNK ()
     Route: 065
  338. SIMVASTATIN. [Concomitant]
     Active Substance: SIMVASTATIN
     Dosage: UNK ()
     Route: 065
  339. ACETYLSALICYLIC ACID [Concomitant]
     Active Substance: ASPIRIN
     Dosage: UNK ()
     Route: 065
  340. GLYCINE. [Concomitant]
     Active Substance: GLYCINE
     Indication: PRODUCT USED FOR UNKNOWN INDICATION
     Dosage: ()
     Route: 065
  341. GLYCINE. [Concomitant]
     Active Substance: GLYCINE
     Dosage: UNK ()
     Route: 065
  342. GLYCINE. [Concomitant]
     Active Substance: GLYCINE
     Dosage: UNK ()
     Route: 065
  343. GLYCINE. [Concomitant]
     Active Substance: GLYCINE
     Dosage: UNK ()
     Route: 065
  344. GLYCINE. [Concomitant]
     Active Substance: GLYCINE
     Dosage: UNK ()
     Route: 065
  345. GLURENORM [Concomitant]
     Active Substance: GLIQUIDONE
     Dosage: ()
     Route: 048
  346. GLURENORM [Concomitant]
     Active Substance: GLIQUIDONE
     Dosage: ()
     Route: 048
  347. BETAXOLOL. [Concomitant]
     Active Substance: BETAXOLOL
     Dosage: UNK ()
     Route: 065
  348. DIAZEPAM. [Suspect]
     Active Substance: DIAZEPAM
     Indication: PARTIAL SEIZURES
     Dosage: UNK ()
     Route: 042
  349. DIAZEPAM. [Suspect]
     Active Substance: DIAZEPAM
     Dosage: ()
     Route: 042
  350. DIAZEPAM. [Suspect]
     Active Substance: DIAZEPAM
     Dosage: ()
  351. DIAZEPAM. [Suspect]
     Active Substance: DIAZEPAM
     Dosage: ()
     Route: 065
  352. PROPOFOL. [Suspect]
     Active Substance: PROPOFOL
     Dosage: ()
     Route: 065
  353. PROPOFOL. [Suspect]
     Active Substance: PROPOFOL
     Dosage: ()
     Route: 065
  354. IBUPROFEN. [Suspect]
     Active Substance: IBUPROFEN
     Indication: ANALGESIC THERAPY
     Dosage: UNK ()
     Route: 048
  355. GLIQUIDONE [Suspect]
     Active Substance: GLIQUIDONE
     Indication: PRODUCT USED FOR UNKNOWN INDICATION
     Dosage: UNK ()
     Route: 065
  356. CEFTRIAXONE SODIUM. [Suspect]
     Active Substance: CEFTRIAXONE SODIUM
     Dosage: UNK ()
     Route: 048
  357. METAMIZOLE [Suspect]
     Active Substance: METAMIZOLE
     Dosage: ()
     Route: 048
  358. ALLOPURINOL. [Suspect]
     Active Substance: ALLOPURINOL
     Dosage: UNK ()
     Route: 065
  359. LISALGIL [Suspect]
     Active Substance: METAMIZOLE SODIUM
     Dosage: UNK ()
     Route: 048
  360. LISALGIL [Suspect]
     Active Substance: METAMIZOLE SODIUM
     Dosage: ()
     Route: 065
  361. VASILIP [Concomitant]
     Active Substance: SIMVASTATIN
     Indication: HYPERCHOLESTEROLAEMIA
     Dosage: UNK
     Route: 048
  362. VASILIP [Concomitant]
     Active Substance: SIMVASTATIN
     Dosage: UNK ()
     Route: 065
  363. VASILIP [Concomitant]
     Active Substance: SIMVASTATIN
     Dosage: UNK ()
     Route: 065
  364. VASILIP [Concomitant]
     Active Substance: SIMVASTATIN
     Dosage: ()
     Route: 048
  365. VASILIP [Concomitant]
     Active Substance: SIMVASTATIN
     Dosage: UNK ()
     Route: 065
  366. VASILIP [Concomitant]
     Active Substance: SIMVASTATIN
     Dosage: UNK ()
     Route: 016
  367. GODASAL [Concomitant]
     Active Substance: ASPIRIN\GLYCINE
     Dosage: ()
     Route: 065
  368. GODASAL [Concomitant]
     Active Substance: ASPIRIN\GLYCINE
     Dosage: UNK ()
     Route: 048
  369. TRITACE [Concomitant]
     Active Substance: RAMIPRIL
     Dosage: UNK ()
     Route: 048
  370. TRITACE [Concomitant]
     Active Substance: RAMIPRIL
     Dosage: UNK ()
     Route: 065
  371. EUTHYROX [Concomitant]
     Active Substance: LEVOTHYROXINE SODIUM
     Dosage: ()
     Route: 048
  372. EUTHYROX [Concomitant]
     Active Substance: LEVOTHYROXINE SODIUM
     Dosage: ()
     Route: 065
  373. KAPIDIN [Concomitant]
     Active Substance: LERCANIDIPINE HYDROCHLORIDE
     Dosage: UNK ()
     Route: 048
  374. CYNT                               /00985301/ [Concomitant]
     Active Substance: MOXONIDINE
     Dosage: ()
     Route: 048
  375. LERCANIDIPINE [Concomitant]
     Active Substance: LERCANIDIPINE
     Dosage: UNK ()
     Route: 065
  376. LERCANIDIPINE [Concomitant]
     Active Substance: LERCANIDIPINE
     Dosage: UNK ()
     Route: 065
  377. LERCANIDIPINE [Concomitant]
     Active Substance: LERCANIDIPINE
     Dosage: UNK ()
     Route: 065
  378. SIMVASTATIN. [Concomitant]
     Active Substance: SIMVASTATIN
     Dosage: UNK ()
     Route: 065
  379. SIMVASTATIN. [Concomitant]
     Active Substance: SIMVASTATIN
     Dosage: UNK ()
     Route: 065
  380. ACETYLSALICYLIC ACID [Concomitant]
     Active Substance: ASPIRIN
     Dosage: UNK ()
     Route: 065
  381. GLYCINE. [Concomitant]
     Active Substance: GLYCINE
     Dosage: UNK ()
     Route: 065
  382. GLURENORM [Concomitant]
     Active Substance: GLIQUIDONE
     Dosage: ()
     Route: 048
  383. BETAXOLOL. [Concomitant]
     Active Substance: BETAXOLOL
     Dosage: UNK ()
     Route: 065
  384. MOXONIDINE [Concomitant]
     Active Substance: MOXONIDINE
     Dosage: ()
     Route: 048

REACTIONS (8)
  - Sopor [Recovering/Resolving]
  - Laceration [Recovered/Resolved with Sequelae]
  - Stevens-Johnson syndrome [Recovered/Resolved with Sequelae]
  - Depressed level of consciousness [Recovering/Resolving]
  - Pneumonia [Not Recovered/Not Resolved]
  - Rash [Recovered/Resolved with Sequelae]
  - Drug ineffective [Unknown]
  - Status epilepticus [Recovering/Resolving]
